FAERS Safety Report 6245886-3 (Version None)
Quarter: 2009Q2

REPORT INFORMATION
  Report Type: 
  Country: None (occurrence: None)
  Receive Date: 20090626
  Receipt Date: 20090615
  Transmission Date: 20091009
  Serious: Yes (Disabling)
  Sender: FDA-Public Use
  Company Number: GB-RANBAXY-2009RR-25063

PATIENT
  Age: 49 Year
  Sex: Male

DRUGS (3)
  1. ACYCLOVIR [Suspect]
     Indication: HERPES ZOSTER
     Dosage: 800 MG, UNK
     Route: 048
     Dates: start: 20090505
  2. PERINDOPRIL ERBUMINE [Concomitant]
  3. SIMVASTATIN [Concomitant]

REACTIONS (4)
  - DELUSION [None]
  - HALLUCINATION, VISUAL [None]
  - PSYCHOTIC DISORDER [None]
  - THOUGHT INSERTION [None]
